FAERS Safety Report 9305846 (Version 2)
Quarter: 2013Q2

REPORT INFORMATION
  Report Type: Report from Study
  Country: CN (occurrence: CN)
  Receive Date: 20130523
  Receipt Date: 20130611
  Transmission Date: 20140414
  Serious: Yes (Other)
  Sender: FDA-Public Use
  Company Number: CN-COVIDIEN/TYCO HEALTHCARE/MALLINCKRODT-T201302362

PATIENT
  Sex: 0

DRUGS (1)
  1. OPTIRAY [Suspect]
     Indication: COMPUTERISED TOMOGRAM
     Dosage: 80 ML, SINGLE AT 2.5 ML/SEC.

REACTIONS (1)
  - Hypersensitivity [Recovered/Resolved]
